FAERS Safety Report 25224635 (Version 1)
Quarter: 2025Q2

REPORT INFORMATION
  Report Type: Spontaneous
  Country: US (occurrence: US)
  Receive Date: 20250422
  Receipt Date: 20250422
  Transmission Date: 20250716
  Serious: Yes (Other)
  Sender: AUROBINDO
  Company Number: US-AUROBINDO-AUR-APL-2025-020254

PATIENT
  Age: 16 Year
  Sex: Male

DRUGS (7)
  1. AMANTADINE [Suspect]
     Active Substance: AMANTADINE
     Indication: Agitation
     Dosage: 100 MILLIGRAM, TWO TIMES A DAY
     Route: 065
  2. CLONIDINE [Suspect]
     Active Substance: CLONIDINE
     Indication: Agitation
     Route: 065
  3. DOXEPIN [Suspect]
     Active Substance: DOXEPIN
     Indication: Agitation
     Route: 065
  4. TIZANIDINE [Suspect]
     Active Substance: TIZANIDINE
     Indication: Agitation
     Route: 065
  5. LISDEXAMFETAMINE [Suspect]
     Active Substance: LISDEXAMFETAMINE
     Indication: Agitation
     Route: 065
  6. LORAZEPAM [Concomitant]
     Active Substance: LORAZEPAM
     Indication: Product used for unknown indication
     Route: 065
  7. LEVETIRACETAM [Concomitant]
     Active Substance: LEVETIRACETAM
     Indication: Product used for unknown indication
     Route: 065

REACTIONS (1)
  - Neuroleptic malignant syndrome [Unknown]
